FAERS Safety Report 9416347 (Version 1)
Quarter: 2013Q3

REPORT INFORMATION
  Report Type: Spontaneous
  Country: US (occurrence: None)
  Receive Date: 20130723
  Receipt Date: 20130723
  Transmission Date: 20140515
  Serious: Yes (Other)
  Sender: FDA-Public Use
  Company Number: None

PATIENT
  Age: 59 Year
  Sex: Female
  Weight: 58.97 kg

DRUGS (1)
  1. LEXAPRO [Suspect]
     Indication: DEPRESSION
     Dosage: 1, DAILY, PO
     Route: 048
     Dates: start: 20121025, end: 20121120

REACTIONS (13)
  - Drug withdrawal syndrome [None]
  - Dyskinesia [None]
  - Shock [None]
  - Nervousness [None]
  - Hypertension [None]
  - Gastrointestinal disorder [None]
  - Thinking abnormal [None]
  - Feeling abnormal [None]
  - Decreased appetite [None]
  - Weight decreased [None]
  - Anxiety [None]
  - Therapeutic response unexpected with drug substitution [None]
  - Product substitution issue [None]
